FAERS Safety Report 15312317 (Version 3)
Quarter: 2018Q4

REPORT INFORMATION
  Report Type: Spontaneous
  Country: US (occurrence: US)
  Receive Date: 20180823
  Receipt Date: 20181207
  Transmission Date: 20190204
  Serious: Yes (Death, Other)
  Sender: FDA-Public Use
  Company Number: US-JNJFOC-20180814101

PATIENT
  Age: 63 Year
  Sex: Male

DRUGS (1)
  1. XARELTO [Suspect]
     Active Substance: RIVAROXABAN
     Indication: DEEP VEIN THROMBOSIS
     Route: 048
     Dates: start: 20160303, end: 20161018

REACTIONS (1)
  - Haemorrhage [Unknown]

NARRATIVE: CASE EVENT DATE: 201610
